FAERS Safety Report 7356313-7 (Version None)
Quarter: 2011Q1

REPORT INFORMATION
  Report Type: 
  Country: None (occurrence: None)
  Receive Date: 20110316
  Receipt Date: 20110307
  Transmission Date: 20110831
  Serious: Yes (Death, Other)
  Sender: FDA-Public Use
  Company Number: US-CELGENEUS-163-21880-11013032

PATIENT
  Sex: Female

DRUGS (6)
  1. LYRICA [Concomitant]
     Route: 065
  2. ANTIBIOTICS [Concomitant]
     Route: 065
  3. DEXAMETHASONE [Concomitant]
     Route: 065
  4. HEPARIN [Concomitant]
     Route: 065
  5. PLAVIX [Concomitant]
     Route: 065
  6. REVLIMID [Suspect]
     Indication: MULTIPLE MYELOMA
     Dosage: 10 MILLIGRAM
     Route: 048
     Dates: start: 20101103

REACTIONS (3)
  - SHOCK [None]
  - RENAL IMPAIRMENT [None]
  - COLITIS [None]
